FAERS Safety Report 9308452 (Version 2)
Quarter: 2013Q2

REPORT INFORMATION
  Report Type: Spontaneous
  Country: FR (occurrence: FR)
  Receive Date: 20130524
  Receipt Date: 20130628
  Transmission Date: 20140414
  Serious: Yes (Life-Threatening, Other)
  Sender: FDA-Public Use
  Company Number: FR-009507513-1305FRA010611

PATIENT
  Age: 39 Year
  Sex: Female

DRUGS (4)
  1. NOXAFIL [Suspect]
     Indication: GASTROINTESTINAL CANDIDIASIS
     Dosage: UNK
     Route: 048
     Dates: start: 20130314, end: 20130328
  2. INEXIUM [Suspect]
     Indication: GASTROOESOPHAGEAL REFLUX DISEASE
     Dosage: UNK
     Route: 048
     Dates: start: 20130318, end: 20130401
  3. FOSCAVIR [Suspect]
     Indication: CYTOMEGALOVIRUS INFECTION
     Dosage: UNK
     Route: 042
     Dates: start: 20130319, end: 20130329
  4. CELLCEPT [Suspect]
     Indication: GRAFT VERSUS HOST DISEASE
     Dosage: UNK
     Route: 042
     Dates: start: 20130320

REACTIONS (1)
  - Toxic epidermal necrolysis [Unknown]
